FAERS Safety Report 20855293 (Version 1)
Quarter: 2022Q2

REPORT INFORMATION
  Report Type: Spontaneous
  Country: US (occurrence: US)
  Receive Date: 20220520
  Receipt Date: 20220520
  Transmission Date: 20220721
  Serious: No
  Sender: FDA-Public Use
  Company Number: US-PFIZER INC-202200357429

PATIENT
  Sex: Female

DRUGS (1)
  1. ZIPRASIDONE HYDROCHLORIDE [Suspect]
     Active Substance: ZIPRASIDONE HYDROCHLORIDE
     Indication: Mania
     Dosage: UNK, 3X/DAY

REACTIONS (3)
  - Weight increased [Unknown]
  - Respiratory dyskinesia [Unknown]
  - Off label use [Unknown]
